APPROVED DRUG PRODUCT: DELALUTIN
Active Ingredient: HYDROXYPROGESTERONE CAPROATE
Strength: 125MG/ML (125MG/ML) **Federal Register determination that product was not discontinued or withdrawn for safety or effectiveness reasons**
Dosage Form/Route: SOLUTION;INTRAMUSCULAR
Application: N010347 | Product #004
Applicant: BRISTOL MYERS SQUIBB
Approved: Approved Prior to Jan 1, 1982 | RLD: Yes | RS: No | Type: DISCN